FAERS Safety Report 23032017 (Version 3)
Quarter: 2024Q2

REPORT INFORMATION
  Report Type: Report from Study
  Country: US (occurrence: US)
  Receive Date: 20231005
  Receipt Date: 20240504
  Transmission Date: 20240716
  Serious: Yes (Hospitalization, Other)
  Sender: FDA-Public Use
  Company Number: US-002147023-NVSC2023US213311

PATIENT
  Sex: Female

DRUGS (1)
  1. ENTRESTO [Suspect]
     Active Substance: SACUBITRIL\VALSARTAN
     Indication: Cardiomyopathy
     Dosage: 1 DOSAGE FORM (49/51 MG)
     Route: 048
     Dates: start: 20230706

REACTIONS (2)
  - Pelvic fracture [Unknown]
  - Cerebrovascular accident [Unknown]
